FAERS Safety Report 7216030-0 (Version None)
Quarter: 2011Q1

REPORT INFORMATION
  Report Type: 
  Country: None (occurrence: None)
  Receive Date: 20110107
  Receipt Date: 20101228
  Transmission Date: 20110831
  Serious: Yes (Hospitalization)
  Sender: FDA-Public Use
  Company Number: BR-ELI_LILLY_AND_COMPANY-BR201012006450

PATIENT
  Sex: Female
  Weight: 58 kg

DRUGS (5)
  1. CARDIZEM [Concomitant]
     Indication: HYPERTENSION
     Dosage: UNK, UNKNOWN
     Route: 065
  2. RENITEC /00574902/ [Concomitant]
     Indication: ARRHYTHMIA
     Dosage: UNK, UNKNOWN
     Route: 065
  3. ALOES EXTRACT [Concomitant]
     Indication: DEMENTIA ALZHEIMER'S TYPE
     Dosage: UNK, UNKNOWN
     Route: 065
  4. FORTEO [Suspect]
     Indication: OSTEOPOROSIS
     Dosage: 20 UG, DAILY (1/D)
     Route: 058
     Dates: start: 20100601
  5. AAS [Concomitant]
     Indication: HYPERTENSION
     Dosage: UNK, UNKNOWN
     Route: 065

REACTIONS (1)
  - RESPIRATORY TRACT INFECTION [None]
